FAERS Safety Report 16925948 (Version 5)
Quarter: 2019Q4

REPORT INFORMATION
  Report Type: Spontaneous
  Country: US (occurrence: US)
  Receive Date: 20191016
  Receipt Date: 20191104
  Transmission Date: 20200122
  Serious: No
  Sender: FDA-Public Use
  Company Number: US-PFIZER INC-2018382012

PATIENT
  Age: 34 Year
  Sex: Female
  Weight: 89.81 kg

DRUGS (2)
  1. LYRICA [Suspect]
     Active Substance: PREGABALIN
     Indication: FIBROMYALGIA
     Dosage: 800 MG, DAILY (300 MG IN THE MORNING, 300 MG AT NIGHT, AND 200 MG IN THE AFTERNOON/IN THE MIDDLE OF
     Route: 048
  2. LYRICA [Suspect]
     Active Substance: PREGABALIN
     Indication: NERVE INJURY

REACTIONS (4)
  - Iron deficiency anaemia [Unknown]
  - Hypertension [Unknown]
  - Anaemia vitamin B12 deficiency [Unknown]
  - Prescribed overdose [Unknown]
